FAERS Safety Report 6928215-9 (Version None)
Quarter: 2010Q3

REPORT INFORMATION
  Report Type: 
  Country: None (occurrence: None)
  Receive Date: 20100817
  Receipt Date: 20100813
  Transmission Date: 20110219
  Serious: Yes (Other)
  Sender: FDA-Public Use
  Company Number: GB-TEVA-244646ISR

PATIENT
  Age: 25 Year
  Sex: Female

DRUGS (2)
  1. ALBUTEROL SULFATE AUTOHALER [Suspect]
     Indication: ASTHMA
     Route: 055
  2. ERGOCALCIFEROL [Suspect]
     Indication: HYPOCALCAEMIA
     Route: 030
     Dates: start: 20100713

REACTIONS (1)
  - MELAENA [None]
